FAERS Safety Report 5886187-2 (Version None)
Quarter: 2008Q3

REPORT INFORMATION
  Report Type: 
  Country: None (occurrence: None)
  Receive Date: 20080917
  Receipt Date: 20080908
  Transmission Date: 20090109
  Serious: Yes (Other)
  Sender: FDA-Public Use
  Company Number: JP-ASTRAZENECA-2008AP05967

PATIENT
  Age: 20830 Day
  Sex: Male

DRUGS (15)
  1. SEROQUEL [Suspect]
     Indication: SCHIZOPHRENIA
     Dosage: DIVIDED INTO FOUR DOSES
     Route: 048
     Dates: start: 20070115, end: 20080711
  2. SEROQUEL [Suspect]
     Dosage: DIVIDED INTO FOUR DOSES
     Route: 048
     Dates: start: 20080712, end: 20080716
  3. SEROQUEL [Suspect]
     Dosage: DIVIDED INTO FOUR DOSES
     Route: 048
     Dates: start: 20080717, end: 20080723
  4. SEROQUEL [Suspect]
     Dosage: DIVIDED INTO FOUR DOSES
     Route: 048
     Dates: start: 20080724, end: 20080730
  5. SEROQUEL [Suspect]
     Dosage: DIVIDED INTO FOUR DOSES
     Route: 048
     Dates: start: 20080731, end: 20080806
  6. DEPAKENE [Suspect]
     Indication: SCHIZOPHRENIA
     Dosage: DIVIDED INTO FOUR DOSES
     Route: 048
     Dates: start: 20070115
  7. SERENACE [Suspect]
     Indication: SCHIZOPHRENIA
     Route: 048
     Dates: start: 20070115
  8. LEVOTOMIN [Concomitant]
     Indication: SCHIZOPHRENIA
     Route: 048
     Dates: start: 20070115
  9. BERIZYM [Concomitant]
     Indication: PEPTIC ULCER
     Dosage: DIVIDED INTO THREE DOSES
     Route: 048
     Dates: start: 20070115
  10. PURSENNID [Concomitant]
     Indication: CONSTIPATION
     Route: 048
     Dates: start: 20070115
  11. RISPERDAL [Concomitant]
     Indication: SCHIZOPHRENIA
     Route: 048
     Dates: start: 20080712, end: 20080716
  12. RISPERDAL [Concomitant]
     Route: 048
     Dates: start: 20080717, end: 20080723
  13. RISPERDAL [Concomitant]
     Route: 048
     Dates: start: 20080724, end: 20080730
  14. RISPERDAL [Concomitant]
     Dosage: DIVIDED INTO THREE DOSES
     Route: 048
     Dates: start: 20080731, end: 20080806
  15. RISPERDAL [Concomitant]
     Dosage: DIVIDED INTO THREE DOSES
     Route: 048
     Dates: start: 20080807

REACTIONS (1)
  - PANCYTOPENIA [None]
